FAERS Safety Report 4459387-6 (Version None)
Quarter: 2004Q3

REPORT INFORMATION
  Report Type: 
  Country: None (occurrence: None)
  Receive Date: 20040927
  Receipt Date: 20030904
  Transmission Date: 20050211
  Serious: Yes (Other)
  Sender: FDA-Public Use
  Company Number: PHHO2003US11444

PATIENT
  Sex: Female

DRUGS (4)
  1. TEGASEROD OR PLACEBO [Suspect]
     Indication: IRRITABLE BOWEL SYNDROME
     Dosage: 12 MG, QD
     Route: 048
  2. NORETHINDRONE ACETATE [Concomitant]
  3. ETHINYL ESTRADIOL TAB [Concomitant]
  4. ISOTRETINOIN [Concomitant]
     Indication: ACNE CYSTIC

REACTIONS (2)
  - ABORTION INDUCED [None]
  - DRUG EXPOSURE DURING PREGNANCY [None]
